FAERS Safety Report 5390110-7 (Version None)
Quarter: 2007Q3

REPORT INFORMATION
  Report Type: 
  Country: None (occurrence: None)
  Receive Date: 20070718
  Receipt Date: 20070713
  Transmission Date: 20080115
  Serious: Yes (Hospitalization)
  Sender: FDA-Public Use
  Company Number: B0477570A

PATIENT
  Age: 13 Year
  Sex: Male
  Weight: 48 kg

DRUGS (2)
  1. PAXIL [Suspect]
     Indication: PANIC DISORDER
     Dosage: 10MG PER DAY
     Route: 048
     Dates: start: 20060614, end: 20060616
  2. BROMAZEPAM [Concomitant]
     Indication: PANIC DISORDER
     Route: 065

REACTIONS (3)
  - EPILEPSY [None]
  - MENTAL STATUS CHANGES [None]
  - TREMOR [None]
